FAERS Safety Report 13269491 (Version 1)
Quarter: 2017Q1

REPORT INFORMATION
  Report Type: Spontaneous
  Country: US (occurrence: US)
  Receive Date: 20170224
  Receipt Date: 20170224
  Transmission Date: 20170428
  Serious: Yes (Other)
  Sender: FDA-Public Use
  Company Number: US-BAYER-2017-031277

PATIENT
  Age: 40 Year
  Sex: Female
  Weight: 95 kg

DRUGS (2)
  1. ALKA-SELTZER PLUS COLD AND COUGH FORMULA [Suspect]
     Active Substance: ACETAMINOPHEN\CHLORPHENIRAMINE\DEXTROMETHORPHAN\PHENYLEPHRINE
     Indication: NASOPHARYNGITIS
  2. ALKA-SELTZER PLUS COLD AND COUGH FORMULA [Suspect]
     Active Substance: ACETAMINOPHEN\CHLORPHENIRAMINE\DEXTROMETHORPHAN\PHENYLEPHRINE
     Indication: HYPERSENSITIVITY
     Dosage: 2 DF, UNK
     Route: 048
     Dates: start: 201701, end: 201701

REACTIONS (5)
  - Choking [Recovered/Resolved]
  - Oesophageal spasm [Recovered/Resolved]
  - Product difficult to swallow [None]
  - Hiccups [Recovered/Resolved]
  - Throat irritation [Recovered/Resolved]

NARRATIVE: CASE EVENT DATE: 201701
